FAERS Safety Report 5915953-X (Version None)
Quarter: 2008Q4

REPORT INFORMATION
  Report Type: 
  Country: None (occurrence: None)
  Receive Date: 20081010
  Receipt Date: 20081006
  Transmission Date: 20090506
  Serious: Yes (Other)
  Sender: FDA-Public Use
  Company Number: US-JNJCH-2008051466

PATIENT
  Age: 18 Month
  Sex: Female
  Weight: 11.3 kg

DRUGS (1)
  1. VISINE L.R. [Suspect]
     Indication: ACCIDENTAL EXPOSURE
     Dosage: TEXT:ONCE
     Route: 048
     Dates: start: 20081002, end: 20081002

REACTIONS (1)
  - ACCIDENTAL EXPOSURE [None]
